FAERS Safety Report 7788717-2 (Version None)
Quarter: 2011Q3

REPORT INFORMATION
  Report Type: 
  Country: None (occurrence: None)
  Receive Date: 20110928
  Receipt Date: 20110913
  Transmission Date: 20111222
  Serious: Yes (Hospitalization)
  Sender: FDA-Public Use
  Company Number: FK201101974

PATIENT
  Age: 61 Year
  Sex: Male

DRUGS (3)
  1. CITALOPRAM HYDROBROMIDE [Suspect]
     Indication: DEPRESSION
  2. FLUOROURACIL [Suspect]
     Indication: RECTAL CANCER
     Dosage: 225 MG/M2, 1 D
  3. RADIOTHERAPY (THERAPEUTIC RADIOPHARMACEUTICALS) [Suspect]
     Indication: RECTAL CANCER

REACTIONS (5)
  - DIZZINESS [None]
  - CREPITATIONS [None]
  - FATIGUE [None]
  - ELECTROCARDIOGRAM ST SEGMENT ELEVATION [None]
  - SINUS BRADYCARDIA [None]
